FAERS Safety Report 24432224 (Version 3)
Quarter: 2025Q2

REPORT INFORMATION
  Report Type: Spontaneous
  Country: CA (occurrence: CA)
  Receive Date: 20241014
  Receipt Date: 20250408
  Transmission Date: 20250716
  Serious: Yes (Other)
  Sender: TAKEDA
  Company Number: CA-TAKEDA-2024TUS098092

PATIENT
  Age: 21 Year
  Sex: Female
  Weight: 102 kg

DRUGS (6)
  1. GAMMAGARD LIQUID [Suspect]
     Active Substance: HUMAN IMMUNOGLOBULIN G
     Indication: Secondary immunodeficiency
     Dates: start: 20240726, end: 20240726
  2. GAMMAGARD LIQUID [Suspect]
     Active Substance: HUMAN IMMUNOGLOBULIN G
     Dosage: 300 MILLILITER, MONTHLY
  3. GAMMAGARD LIQUID [Suspect]
     Active Substance: HUMAN IMMUNOGLOBULIN G
     Dosage: 30 GRAM, MONTHLY
  4. DIPHENHYDRAMINE [Concomitant]
     Active Substance: DIPHENHYDRAMINE
  5. SOLU-CORTEF [Concomitant]
     Active Substance: HYDROCORTISONE SODIUM SUCCINATE
  6. BENADRYL [Concomitant]
     Active Substance: DIPHENHYDRAMINE HYDROCHLORIDE

REACTIONS (15)
  - Allergic transfusion reaction [Unknown]
  - Arthralgia [Unknown]
  - Back pain [Unknown]
  - Blood pressure increased [Unknown]
  - Dyspnoea [Recovered/Resolved]
  - Headache [Recovered/Resolved]
  - Heart rate increased [Unknown]
  - Hot flush [Recovered/Resolved]
  - Hyperhidrosis [Recovered/Resolved]
  - Somnolence [Recovered/Resolved]
  - Throat tightness [Recovered/Resolved]
  - Transfusion reaction [Unknown]
  - Erythema [Recovered/Resolved]
  - Haemolysis [Recovered/Resolved]
  - Hypersensitivity [Unknown]

NARRATIVE: CASE EVENT DATE: 20240726
